FAERS Safety Report 17315427 (Version 1)
Quarter: 2020Q1

REPORT INFORMATION
  Report Type: Spontaneous
  Country: JP (occurrence: JP)
  Receive Date: 20200124
  Receipt Date: 20200124
  Transmission Date: 20200409
  Serious: Yes (Death)
  Sender: FDA-Public Use
  Company Number: JP-RECORDATI RARE DISEASES-2079369

PATIENT
  Age: 1 Month
  Sex: Male

DRUGS (1)
  1. CARBAGLU [Suspect]
     Active Substance: CARGLUMIC ACID
     Indication: HYPERAMMONAEMIA
     Route: 048
     Dates: start: 201912, end: 20191230

REACTIONS (2)
  - Acute kidney injury [Fatal]
  - Disease progression [Fatal]

NARRATIVE: CASE EVENT DATE: 20191230
